FAERS Safety Report 23085752 (Version 3)
Quarter: 2024Q1

REPORT INFORMATION
  Report Type: Report from Study
  Country: US (occurrence: US)
  Receive Date: 20231019
  Receipt Date: 20240315
  Transmission Date: 20240410
  Serious: Yes (Death, Hospitalization, Other)
  Sender: FDA-Public Use
  Company Number: US-JAZZ-2022-US-014977

PATIENT
  Age: 39 Year
  Sex: Female

DRUGS (12)
  1. XYREM [Suspect]
     Active Substance: SODIUM OXYBATE
     Indication: Narcolepsy
     Dosage: 4.5 GRAM, BID
     Route: 048
     Dates: start: 2005
  2. XYREM [Suspect]
     Active Substance: SODIUM OXYBATE
     Indication: Cataplexy
     Dosage: UNK
  3. XYREM [Suspect]
     Active Substance: SODIUM OXYBATE
     Indication: Somnolence
     Dosage: UNK
  4. XYREM [Suspect]
     Active Substance: SODIUM OXYBATE
     Indication: Hypersomnia
     Dosage: UNK
  5. XYREM [Suspect]
     Active Substance: SODIUM OXYBATE
     Dosage: UNK
  6. CEFIXIME [Suspect]
     Active Substance: CEFIXIME
     Indication: Product used for unknown indication
     Dosage: UNK
  7. GABAPENTIN [Suspect]
     Active Substance: GABAPENTIN
     Indication: Product used for unknown indication
     Dosage: UNK
  8. EPIPEN [Concomitant]
     Active Substance: EPINEPHRINE
     Indication: Product used for unknown indication
     Dosage: UNK
     Dates: start: 20150908
  9. DESENEX [CLOTRIMAZOLE] [Concomitant]
     Indication: Product used for unknown indication
     Dosage: UNK
     Dates: start: 20150908
  10. ADDERALL PRAMIPEXOLE [Concomitant]
     Indication: Periodic limb movement disorder
     Dosage: UNK, PRN
     Dates: start: 20150908
  11. ADDERALL PRAMIPEXOLE [Concomitant]
     Indication: Ehlers-Danlos syndrome
     Dosage: 30 MG, 20 MG TWO TIMES
     Route: 048
     Dates: start: 2017
  12. ACETAMINOPHEN\HYDROCODONE [Concomitant]
     Active Substance: ACETAMINOPHEN\HYDROCODONE
     Indication: Product used for unknown indication
     Dosage: 0000
     Dates: start: 20231010

REACTIONS (26)
  - Cerebrovascular accident [Fatal]
  - Cardiac arrest [Recovering/Resolving]
  - Brain neoplasm [Unknown]
  - Fall [Recovering/Resolving]
  - Hospitalisation [Unknown]
  - Pneumonia [Unknown]
  - Seizure [Recovered/Resolved]
  - Hypokalaemia [Unknown]
  - Influenza [Unknown]
  - Endometriosis [Not Recovered/Not Resolved]
  - Blood cholesterol increased [Not Recovered/Not Resolved]
  - Hypothyroidism [Not Recovered/Not Resolved]
  - Osteoarthritis [Not Recovered/Not Resolved]
  - Osteoporosis [Not Recovered/Not Resolved]
  - Obesity [Not Recovered/Not Resolved]
  - Adjustment disorder with depressed mood [Unknown]
  - Restless legs syndrome [Unknown]
  - Abdominal discomfort [Unknown]
  - Rhinitis [Not Recovered/Not Resolved]
  - Dizziness [Unknown]
  - Pain [Not Recovered/Not Resolved]
  - Hypertension [Not Recovered/Not Resolved]
  - Vision blurred [Unknown]
  - Sleep apnoea syndrome [Unknown]
  - Drug hypersensitivity [Unknown]
  - Off label use [Unknown]

NARRATIVE: CASE EVENT DATE: 20150819
